FAERS Safety Report 5968777-1 (Version None)
Quarter: 2008Q4

REPORT INFORMATION
  Report Type: 
  Country: None (occurrence: None)
  Receive Date: 20081119
  Receipt Date: 20081017
  Transmission Date: 20090506
  Serious: No
  Sender: FDA-Public Use
  Company Number: WAES 0810USA03332

PATIENT
  Sex: Female

DRUGS (3)
  1. JANUVIA [Suspect]
     Indication: DIABETES MELLITUS
     Dosage: 100 MG/DAILY/PO
     Route: 048
  2. GLIMEPIRIDE [Concomitant]
  3. METFORMIN HCL [Concomitant]

REACTIONS (3)
  - EATING DISORDER [None]
  - HYPOGLYCAEMIA [None]
  - NAUSEA [None]
